FAERS Safety Report 14787777 (Version 2)
Quarter: 2019Q2

REPORT INFORMATION
  Report Type: Spontaneous
  Country: US (occurrence: US)
  Receive Date: 20180422
  Receipt Date: 20190625
  Transmission Date: 20190711
  Serious: Yes (Other)
  Sender: FDA-Public Use
  Company Number: US-ASTRAZENECA-2018SE48062

PATIENT
  Sex: Female
  Weight: 74.8 kg

DRUGS (26)
  1. NEXIUM [Suspect]
     Active Substance: ESOMEPRAZOLE MAGNESIUM
     Route: 048
     Dates: start: 1980, end: 2016
  2. NEXIUM [Suspect]
     Active Substance: ESOMEPRAZOLE MAGNESIUM
     Route: 048
     Dates: start: 20100508
  3. TRICOR [Concomitant]
     Active Substance: FENOFIBRATE
  4. AMLODIPINE [Concomitant]
     Active Substance: AMLODIPINE BESYLATE
  5. ESCITALOPRAM [Concomitant]
     Active Substance: ESCITALOPRAM OXALATE
  6. NEXIUM [Suspect]
     Active Substance: ESOMEPRAZOLE MAGNESIUM
     Route: 048
     Dates: start: 1989, end: 2016
  7. METFORMIN [Concomitant]
     Active Substance: METFORMIN HYDROCHLORIDE
  8. SYMBICORT [Concomitant]
     Active Substance: BUDESONIDE\FORMOTEROL FUMARATE DIHYDRATE
  9. SPIRIVA [Concomitant]
     Active Substance: TIOTROPIUM BROMIDE MONOHYDRATE
  10. CEFDINIR. [Concomitant]
     Active Substance: CEFDINIR
  11. LEXAPRO [Concomitant]
     Active Substance: ESCITALOPRAM OXALATE
  12. PROTONIX [Suspect]
     Active Substance: PANTOPRAZOLE SODIUM
     Route: 065
     Dates: start: 1980, end: 2016
  13. PROAIR HFA [Concomitant]
     Active Substance: ALBUTEROL SULFATE
  14. AZITHROMYCIN ANHYDROUS. [Concomitant]
     Active Substance: AZITHROMYCIN ANHYDROUS
  15. HUMALOG [Concomitant]
     Active Substance: INSULIN LISPRO
  16. PRILOSEC [Suspect]
     Active Substance: OMEPRAZOLE MAGNESIUM
     Route: 048
     Dates: start: 1989, end: 2016
  17. PROTONIX [Suspect]
     Active Substance: PANTOPRAZOLE SODIUM
     Route: 065
     Dates: start: 1989, end: 2016
  18. ETODOLAC. [Concomitant]
     Active Substance: ETODOLAC
  19. PRILOSEC OTC [Suspect]
     Active Substance: OMEPRAZOLE MAGNESIUM
     Route: 048
     Dates: start: 1980, end: 2016
  20. RANITIDINE. [Concomitant]
     Active Substance: RANITIDINE
  21. PRILOSEC [Suspect]
     Active Substance: OMEPRAZOLE MAGNESIUM
     Route: 048
     Dates: start: 1980, end: 2016
  22. NEXIUM [Suspect]
     Active Substance: ESOMEPRAZOLE MAGNESIUM
     Route: 048
     Dates: start: 20141223
  23. NEXIUM 24HR [Suspect]
     Active Substance: ESOMEPRAZOLE MAGNESIUM
     Route: 048
     Dates: start: 1980, end: 2016
  24. FLUTICASONE. [Concomitant]
     Active Substance: FLUTICASONE
  25. GABAPENTIN. [Concomitant]
     Active Substance: GABAPENTIN
  26. PREDNISONE. [Concomitant]
     Active Substance: PREDNISONE

REACTIONS (2)
  - Chronic kidney disease [Unknown]
  - Renal failure [Unknown]
